FAERS Safety Report 17036062 (Version 1)
Quarter: 2019Q4

REPORT INFORMATION
  Report Type: Spontaneous
  Country: US (occurrence: US)
  Receive Date: 20191114
  Receipt Date: 20191114
  Transmission Date: 20200122
  Serious: Yes (Life-Threatening, Disabling, Other)
  Sender: FDA-Public Use
  Company Number: None

PATIENT
  Age: 57 Year
  Sex: Female
  Weight: 62.1 kg

DRUGS (24)
  1. LIDOCAINE OINTMENT 5% [Concomitant]
  2. GARCENIA CAMBOGIA [Concomitant]
  3. CDP-CHOLINE [Concomitant]
  4. VITAMIN B2 5000 IU [Concomitant]
  5. EQUTE ALLERGY(DIPHENHYDRAMINE) [Concomitant]
  6. ZINC. [Concomitant]
     Active Substance: ZINC
  7. VENLAFAXINE [Suspect]
     Active Substance: VENLAFAXINE HYDROCHLORIDE
     Indication: MAJOR DEPRESSION
     Dosage: ?          QUANTITY:1 CAPSULE(S);?
     Route: 048
     Dates: start: 20161101, end: 20191001
  8. SUMATRIPTAN 100 MG [Concomitant]
     Active Substance: SUMATRIPTAN
  9. VEGAN MULTIVITAMIN [Concomitant]
  10. LUTEINE 20 MG [Concomitant]
  11. CALCIUM [Concomitant]
     Active Substance: CALCIUM
  12. POLICOSANOL 25 MG [Concomitant]
  13. DICLOFENAC SODIUM TOPICAL GEL [Concomitant]
     Active Substance: DICLOFENAC SODIUM
  14. AZELASTINE NASAL SPRAY [Concomitant]
     Active Substance: AZELASTINE
  15. MAGNESIUM GLYCONATE [Concomitant]
  16. VITAMIN C [Concomitant]
     Active Substance: ASCORBIC ACID
  17. NEOMYCIN AND POLYMYXIN B SULFATE AND DEXAMETHASONE OPTH [Concomitant]
  18. L-CARNITINE [Concomitant]
     Active Substance: LEVOCARNITINE
  19. LYRICA [Concomitant]
     Active Substance: PREGABALIN
  20. EPIPEN [Concomitant]
     Active Substance: EPINEPHRINE
  21. VITAMIN K [Concomitant]
     Active Substance: PHYTONADIONE
  22. INOSTIOL [Concomitant]
  23. VITAMIN D3 [Concomitant]
     Active Substance: CHOLECALCIFEROL
  24. TUMERIC [Concomitant]
     Active Substance: HERBALS\TURMERIC

REACTIONS (1)
  - Retinal detachment [None]

NARRATIVE: CASE EVENT DATE: 20191001
